FAERS Safety Report 9849229 (Version 1)
Quarter: 2014Q1

REPORT INFORMATION
  Report Type: Spontaneous
  Country: ES (occurrence: ES)
  Receive Date: 20140128
  Receipt Date: 20140128
  Transmission Date: 20141002
  Serious: Yes (Death, Other)
  Sender: FDA-Public Use
  Company Number: PHHY2014ES008773

PATIENT
  Age: 49 Year
  Sex: Male

DRUGS (5)
  1. IMATINIB [Suspect]
     Indication: METASTATIC MALIGNANT MELANOMA
     Dosage: 400 MG
  2. CARBOPLATIN [Suspect]
     Indication: METASTASES TO SKIN
  3. DACARBAZINE [Suspect]
     Indication: METASTASES TO SKIN
  4. IPILIMUMAB [Concomitant]
     Indication: METASTASES TO THE MEDIASTINUM
  5. INTERFERON [Concomitant]

REACTIONS (6)
  - Death [Fatal]
  - Malignant melanoma [Unknown]
  - Malignant neoplasm progression [Unknown]
  - Metastases to central nervous system [Unknown]
  - Metastases to the mediastinum [Unknown]
  - Therapeutic response decreased [Unknown]
